FAERS Safety Report 24189376 (Version 3)
Quarter: 2024Q3

REPORT INFORMATION
  Report Type: Spontaneous
  Country: US (occurrence: US)
  Receive Date: 20240808
  Receipt Date: 20240912
  Transmission Date: 20241016
  Serious: No
  Sender: PFIZER
  Company Number: US-PFIZER INC-202400231228

PATIENT
  Age: 10 Year
  Sex: Male
  Weight: 27.7 kg

DRUGS (3)
  1. GENOTROPIN [Suspect]
     Active Substance: SOMATROPIN
     Indication: Growth hormone deficiency
     Dosage: 0.9 MG, DAILY
     Route: 058
     Dates: start: 202401, end: 2024
  2. GENOTROPIN [Suspect]
     Active Substance: SOMATROPIN
     Indication: Hypopituitarism
     Dosage: 1 MG, DAILY (0.25 MG/KG/WEEK)
     Route: 058
     Dates: start: 2024, end: 2024
  3. GENOTROPIN [Suspect]
     Active Substance: SOMATROPIN
     Dosage: 1.2MG/DAY 7 DAYS/WEEK (0.3 MG/KG/WEEK)
     Route: 058
     Dates: start: 2024, end: 2024

REACTIONS (1)
  - Urticaria [Unknown]

NARRATIVE: CASE EVENT DATE: 20240101
